FAERS Safety Report 12139605 (Version 2)
Quarter: 2016Q1

REPORT INFORMATION
  Report Type: Report from Study
  Country: US (occurrence: US)
  Receive Date: 20160303
  Receipt Date: 20160318
  Transmission Date: 20160526
  Serious: Yes (Death, Hospitalization)
  Sender: FDA-Public Use
  Company Number: US-BEH-2016059547

PATIENT
  Age: 31 Year
  Sex: Male

DRUGS (20)
  1. ONDANSETRON [Concomitant]
     Active Substance: ONDANSETRON
  2. METHYLPREDNISOLONE. [Concomitant]
     Active Substance: METHYLPREDNISOLONE
  3. ARTIFICIAL TEARS [Concomitant]
     Active Substance: GLYCERIN\HYPROMELLOSES\POLYETHYLENE GLYCOL 400
  4. CISATRACURIUM. [Concomitant]
     Active Substance: CISATRACURIUM
     Dosage: CONTINUOUS INFUSIONS
  5. FENTANYL. [Concomitant]
     Active Substance: FENTANYL
  6. ACETAMINOPHEN. [Concomitant]
     Active Substance: ACETAMINOPHEN
  7. DEXTROSE 50% [Concomitant]
     Active Substance: DEXTROSE
  8. VELETRI [Concomitant]
     Active Substance: EPOPROSTENOL
     Dosage: CONTINUOUS INFUSIONS
  9. NOREPINEPHRINE BITARTRATE. [Concomitant]
     Active Substance: NOREPINEPHRINE BITARTRATE
     Dosage: CONTINUOUS INFUSIONS
  10. PROPOFOL. [Concomitant]
     Active Substance: PROPOFOL
     Dosage: CONTINUOUS INFUSIONS
  11. SODIUM CHLORIDE. [Concomitant]
     Active Substance: SODIUM CHLORIDE
     Dosage: CONTINUOUS INFUSIONS
  12. ZEMAIRA [Suspect]
     Active Substance: .ALPHA.1-PROTEINASE INHIBITOR HUMAN
     Dosage: DOSE 1
     Route: 042
     Dates: start: 20151223
  13. VASOPRESSIN. [Concomitant]
     Active Substance: VASOPRESSIN
     Dosage: CONTINUOUS INFUSIONS
  14. PANTOPRAZOLE [Concomitant]
     Active Substance: PANTOPRAZOLE SODIUM
  15. MIDAZOLAM (PF) [Concomitant]
  16. PRAMOXINE [Concomitant]
     Active Substance: PRAMOXINE
  17. ZEMAIRA [Suspect]
     Active Substance: .ALPHA.1-PROTEINASE INHIBITOR HUMAN
     Indication: ACUTE GRAFT VERSUS HOST DISEASE
     Dosage: DOSE 2
     Route: 042
     Dates: start: 20151226
  18. FENTANYL. [Concomitant]
     Active Substance: FENTANYL
     Dosage: CONTINUOUS INFUSIONS
  19. CHLORHEXIDINE [Concomitant]
     Active Substance: CHLORHEXIDINE
  20. MICONAZOLE. [Concomitant]
     Active Substance: MICONAZOLE

REACTIONS (9)
  - Hypoxia [Fatal]
  - Pneumomediastinum [Unknown]
  - Gastrointestinal haemorrhage [Unknown]
  - Pulmonary alveolar haemorrhage [Unknown]
  - Pneumonia [Unknown]
  - Oxygen supplementation [Unknown]
  - Hypoxia [Fatal]
  - Respiratory failure [Fatal]
  - Pericardial effusion [Unknown]

NARRATIVE: CASE EVENT DATE: 201601
